FAERS Safety Report 6796244-4 (Version None)
Quarter: 2010Q2

REPORT INFORMATION
  Report Type: 
  Country: None (occurrence: None)
  Receive Date: 20100624
  Receipt Date: 20100624
  Transmission Date: 20101027
  Serious: Yes (Life-Threatening, Hospitalization)
  Sender: FDA-Public Use
  Company Number: None

PATIENT
  Age: 64 Year
  Sex: Male
  Weight: 108.1 kg

DRUGS (3)
  1. CEFAZOLIN [Suspect]
     Indication: PROPHYLAXIS
     Dosage: 2 GM ONCE IV
     Route: 042
     Dates: start: 20100512, end: 20100512
  2. CEFAZOLIN [Suspect]
     Indication: SURGERY
     Dosage: 2 GM ONCE IV
     Route: 042
     Dates: start: 20100512, end: 20100512
  3. VECURONIUM BROMIDE [Suspect]
     Indication: ANAESTHESIA
     Dosage: 5 MG ONCE IV
     Route: 042
     Dates: start: 20100512, end: 20100512

REACTIONS (2)
  - ANAPHYLACTIC REACTION [None]
  - PRURITUS [None]
